FAERS Safety Report 14028086 (Version 1)
Quarter: 2017Q4

REPORT INFORMATION
  Report Type: Spontaneous
  Country: US (occurrence: US)
  Receive Date: 20171002
  Receipt Date: 20171002
  Transmission Date: 20180321
  Serious: No
  Sender: FDA-Public Use
  Company Number: US-ASTRAZENECA-2017SE98503

PATIENT
  Sex: Female
  Weight: 124.7 kg

DRUGS (2)
  1. TUDORZA PRESSAIR [Suspect]
     Active Substance: ACLIDINIUM BROMIDE
     Indication: CHRONIC OBSTRUCTIVE PULMONARY DISEASE
     Route: 055
     Dates: start: 2014
  2. OXYBUTYNIN. [Concomitant]
     Active Substance: OXYBUTYNIN CHLORIDE
     Indication: URINARY INCONTINENCE
     Route: 048

REACTIONS (7)
  - Cough [Recovered/Resolved]
  - Nerve compression [Recovering/Resolving]
  - Hypoaesthesia [Recovering/Resolving]
  - Adverse event [Recovering/Resolving]
  - Nasopharyngitis [Recovered/Resolved]
  - Paraesthesia [Recovering/Resolving]
  - Pain in extremity [Recovering/Resolving]
